FAERS Safety Report 19457029 (Version 1)
Quarter: 2021Q2

REPORT INFORMATION
  Report Type: Spontaneous
  Country: JP (occurrence: JP)
  Receive Date: 20210624
  Receipt Date: 20210624
  Transmission Date: 20210717
  Serious: Yes (Other)
  Sender: FDA-Public Use
  Company Number: JP-PFIZER INC-2021682322

PATIENT
  Age: 11 Year
  Sex: Male

DRUGS (4)
  1. MANNITOL. [Suspect]
     Active Substance: MANNITOL
  2. EDARAVONA [Suspect]
     Active Substance: EDARAVONE
  3. CYCLOSPORIN [Suspect]
     Active Substance: CYCLOSPORINE
     Indication: ENCEPHALOPATHY
     Dosage: UNK
  4. METHYLPREDNISOLONE. [Suspect]
     Active Substance: METHYLPREDNISOLONE
     Indication: ENCEPHALOPATHY
     Dosage: UNK (HIGH?DOSE)

REACTIONS (1)
  - Mental impairment [Unknown]
